FAERS Safety Report 5815386-0 (Version None)
Quarter: 2008Q3

REPORT INFORMATION
  Report Type: 
  Country: None (occurrence: None)
  Receive Date: 20080718
  Receipt Date: 20080708
  Transmission Date: 20090109
  Serious: Yes (Other)
  Sender: FDA-Public Use
  Company Number: BE-PFIZER INC-2008048053

PATIENT
  Sex: Female
  Weight: 63 kg

DRUGS (1)
  1. CHANTIX [Suspect]
     Indication: SMOKING CESSATION THERAPY
     Route: 048

REACTIONS (6)
  - BULIMIA NERVOSA [None]
  - DEPRESSION [None]
  - FATIGUE [None]
  - LIBIDO DECREASED [None]
  - SUICIDAL IDEATION [None]
  - WEIGHT INCREASED [None]
